FAERS Safety Report 11912921 (Version 3)
Quarter: 2016Q1

REPORT INFORMATION
  Report Type: Report from Study
  Country: FR (occurrence: FR)
  Receive Date: 20160113
  Receipt Date: 20160323
  Transmission Date: 20160526
  Serious: Yes (Hospitalization)
  Sender: FDA-Public Use
  Company Number: FR-ROCHE-1692588

PATIENT
  Age: 58 Year
  Sex: Male
  Weight: 82 kg

DRUGS (10)
  1. IFOSFAMIDE. [Concomitant]
     Active Substance: IFOSFAMIDE
     Indication: PRODUCT USED FOR UNKNOWN INDICATION
     Dosage: CONSOLIDATION, HLX
     Route: 065
     Dates: start: 20150428, end: 20150823
  2. CYCLOPHOSPHAMIDE. [Concomitant]
     Active Substance: CYCLOPHOSPHAMIDE
     Indication: PRODUCT USED FOR UNKNOWN INDICATION
     Dosage: INDUCTION (4 CYCLES) ENDING 14/APR/2015. CONSOLIDATION (4 CYCLES), STARTING 28/APR/2015, ENDING 23/A
     Route: 065
     Dates: start: 20150227, end: 20150823
  3. DOXORUBICIN [Concomitant]
     Active Substance: DOXORUBICIN
     Indication: PRODUCT USED FOR UNKNOWN INDICATION
     Dosage: INDUCTION (4 CYCLES) ENDING 14/APR/2015. CONSOLIDATION (4 CYCLES), STARTING 28/APR/2015, ENDING 23/A
     Route: 065
     Dates: start: 20150227, end: 20150823
  4. VP-16 [Concomitant]
     Active Substance: ETOPOSIDE
     Indication: PRODUCT USED FOR UNKNOWN INDICATION
     Dosage: CONSOLIDATION
     Route: 065
     Dates: start: 20150428, end: 20150823
  5. VINDESINE [Concomitant]
     Active Substance: VINDESINE
     Indication: PRODUCT USED FOR UNKNOWN INDICATION
     Dosage: INDUCTION (4 CYCLES) ENDING 14/APR/2015. CONSOLIDATION (4 CYCLES), STARTING 28/APR/2015, ENDING 23/A
     Route: 065
     Dates: start: 20150227, end: 20150823
  6. METHOTREXATE [Concomitant]
     Active Substance: METHOTREXATE
     Indication: PRODUCT USED FOR UNKNOWN INDICATION
     Dosage: CONSOLIDATION (2 CYCLES), HIGH DOSE
     Route: 037
     Dates: start: 20150428, end: 20150823
  7. OBINUTUZUMAB [Suspect]
     Active Substance: OBINUTUZUMAB
     Indication: DIFFUSE LARGE B-CELL LYMPHOMA
     Dosage: INDUCTION (4 CYCLES) ENDING 14/APR/2015. CONSOLIDATION (4 CYCLES), STARTING 29/APR/2015, ENDING 23/A
     Route: 042
     Dates: start: 20150227, end: 20150823
  8. PREDNISONE. [Concomitant]
     Active Substance: PREDNISONE
     Indication: PRODUCT USED FOR UNKNOWN INDICATION
     Dosage: INDUCTION (4 CYCLES) ENDING 14/APR/2015. CONSOLIDATION (4 CYCLES), STARTING 28/APR/2015, ENDING 23/A
     Route: 065
     Dates: start: 20150227, end: 20150823
  9. BLEOMYCIN [Concomitant]
     Active Substance: BLEOMYCIN SULFATE
     Indication: PRODUCT USED FOR UNKNOWN INDICATION
     Dosage: INDUCTION (4 CYCLES) ENDING 14/APR/2015. CONSOLIDATION (4 CYCLES), STARTING 28/APR/2015, ENDING 23/A
     Route: 065
     Dates: start: 20150227, end: 20150823
  10. ARA-C [Concomitant]
     Active Substance: CYTARABINE
     Indication: PRODUCT USED FOR UNKNOWN INDICATION
     Dosage: CONSOLIDATION (1 CYCLE RECEIVED), SECOND CYCLE NOT REALISED.
     Route: 065
     Dates: start: 20150428, end: 20150823

REACTIONS (1)
  - Eczema [Recovered/Resolved]

NARRATIVE: CASE EVENT DATE: 20151119
